FAERS Safety Report 6568643-7 (Version None)
Quarter: 2010Q1

REPORT INFORMATION
  Report Type: 
  Country: None (occurrence: None)
  Receive Date: 20100203
  Receipt Date: 20100122
  Transmission Date: 20100710
  Serious: Yes (Death, Other)
  Sender: FDA-Public Use
  Company Number: DE-AMGEN-UK373214

PATIENT
  Age: 59 Year
  Sex: Female

DRUGS (4)
  1. VECTIBIX [Suspect]
     Indication: COLORECTAL CANCER
     Dates: start: 20090301, end: 20090501
  2. CETUXIMAB [Concomitant]
     Dates: start: 20090301, end: 20090501
  3. IRINOTECAN HCL [Concomitant]
     Dates: start: 20090501, end: 20090501
  4. 5-FU [Concomitant]
     Dates: start: 20090501, end: 20090501

REACTIONS (5)
  - BLOOD CREATININE INCREASED [None]
  - CEREBRAL DISORDER [None]
  - DEHYDRATION [None]
  - METASTASES TO CENTRAL NERVOUS SYSTEM [None]
  - RASH MACULO-PAPULAR [None]
